FAERS Safety Report 8260276-X (Version None)
Quarter: 2012Q2

REPORT INFORMATION
  Report Type: 
  Country: None (occurrence: None)
  Receive Date: 20120404
  Receipt Date: 20120322
  Transmission Date: 20120825
  Serious: Yes (Other)
  Sender: FDA-Public Use
  Company Number: BR-ROCHE-1033550

PATIENT
  Sex: Female
  Weight: 67 kg

DRUGS (5)
  1. ACTEMRA [Suspect]
     Indication: RHEUMATOID ARTHRITIS
     Route: 042
     Dates: start: 20111104, end: 20111219
  2. MABTHERA [Suspect]
     Indication: PRODUCT USED FOR UNKNOWN INDICATION
     Dates: start: 20111104
  3. DICLOFENAC SODIUM [Concomitant]
  4. MABTHERA [Suspect]
     Dates: start: 20111219
  5. CORTICOIDS [Concomitant]

REACTIONS (3)
  - SPINAL DISORDER [None]
  - HEPATIC CIRRHOSIS [None]
  - CERVICOBRACHIAL SYNDROME [None]
